FAERS Safety Report 5514880-X (Version None)
Quarter: 2007Q4

REPORT INFORMATION
  Report Type: 
  Country: None (occurrence: None)
  Receive Date: 20071113
  Receipt Date: 20060918
  Transmission Date: 20080405
  Serious: No
  Sender: FDA-Public Use
  Company Number: A0620544A

PATIENT
  Age: 60 Year
  Sex: Female

DRUGS (3)
  1. COREG [Suspect]
     Dosage: 3.125MG PER DAY
     Route: 048
     Dates: start: 20060914
  2. CRESTOR [Concomitant]
  3. ACTIVELLA [Concomitant]

REACTIONS (2)
  - DIZZINESS [None]
  - NOCTURIA [None]
